FAERS Safety Report 12659775 (Version 1)
Quarter: 2016Q3

REPORT INFORMATION
  Report Type: Spontaneous
  Country: US (occurrence: US)
  Receive Date: 20160817
  Receipt Date: 20160817
  Transmission Date: 20161109
  Serious: Yes (Other)
  Sender: FDA-Public Use
  Company Number: US-MALLINCKRODT-T201602625

PATIENT
  Sex: Female

DRUGS (2)
  1. H.P. ACTHAR [Suspect]
     Active Substance: CORTICOTROPIN
     Indication: MULTIPLE SCLEROSIS RELAPSE
     Dosage: UNK
     Route: 065
     Dates: start: 2015
  2. BENADRYL [Concomitant]
     Active Substance: DIPHENHYDRAMINE HYDROCHLORIDE
     Indication: HYPERSENSITIVITY
     Dosage: UNK

REACTIONS (8)
  - Joint swelling [Unknown]
  - Muscle spasms [Unknown]
  - Injection site swelling [Unknown]
  - Peroneal nerve palsy [Unknown]
  - Arthralgia [Unknown]
  - Adrenocortical insufficiency acute [Recovering/Resolving]
  - Injection site pain [Unknown]
  - Burning sensation [Unknown]

NARRATIVE: CASE EVENT DATE: 2015
